FAERS Safety Report 8889087 (Version 1)
Quarter: 2012Q4

REPORT INFORMATION
  Report Type: 
  Country: US (occurrence: US)
  Receive Date: 20121106
  Receipt Date: 20121106
  Transmission Date: 20130627
  Serious: Yes (Other)
  Sender: FDA-Public Use
  Company Number: US-DX529-2012DX000235

PATIENT
  Age: 17 Year
  Sex: Female
  Weight: 65.77 kg

DRUGS (7)
  1. KALBITOR [Suspect]
     Indication: HEREDITARY ANGIOEDEMA
     Route: 058
     Dates: start: 201209, end: 201209
  2. KALBITOR [Suspect]
     Indication: HEREDITARY ANGIOEDEMA
     Route: 058
     Dates: start: 20121016, end: 20121016
  3. PROGESTERONE [Concomitant]
     Indication: HEREDITARY ANGIOEDEMA
     Dates: start: 201206
  4. NORETHINDRONE /00044901/ [Concomitant]
     Indication: HEREDITARY ANGIOEDEMA
  5. ALBUTEROL /00139501/ [Concomitant]
     Indication: ASTHMA
     Dosage: Dose unit:2 Inhal.
     Route: 055
  6. ZYRTEC [Concomitant]
     Indication: HYPERSENSITIVITY
  7. ASMANEX [Concomitant]
     Indication: ASTHMA
     Dosage: Dose unit:1 Inhal.
     Route: 055
     Dates: start: 201206

REACTIONS (16)
  - Anaphylactic reaction [Unknown]
  - Irritability [Unknown]
  - Discomfort [Unknown]
  - Heart rate increased [Unknown]
  - Ocular hyperaemia [Unknown]
  - Agitation [Unknown]
  - Emotional distress [Unknown]
  - Urticaria [Unknown]
  - Feeling abnormal [Unknown]
  - Chest discomfort [Unknown]
  - Flushing [Unknown]
  - Headache [Unknown]
  - Nausea [Unknown]
  - Vomiting [Unknown]
  - Pyrexia [Unknown]
  - Drug ineffective [Unknown]
